FAERS Safety Report 18874960 (Version 1)
Quarter: 2021Q1

REPORT INFORMATION
  Report Type: Spontaneous
  Country: FR (occurrence: FR)
  Receive Date: 20210210
  Receipt Date: 20210210
  Transmission Date: 20210420
  Serious: Yes (Other)
  Sender: FDA-Public Use
  Company Number: FR-BAYER-2021-041279

PATIENT
  Sex: Female

DRUGS (1)
  1. MIRENA [Suspect]
     Active Substance: LEVONORGESTREL
     Dosage: 20 ?G PER DAY, CONTINUOUSLY
     Route: 015

REACTIONS (6)
  - Dysmenorrhoea [None]
  - Ovarian cyst [None]
  - Portal vein occlusion [None]
  - Hirsutism [None]
  - Weight increased [None]
  - Hypertrichosis [None]

NARRATIVE: CASE EVENT DATE: 2019
